FAERS Safety Report 10191053 (Version 1)
Quarter: 2014Q2

REPORT INFORMATION
  Report Type: Spontaneous
  Country: US (occurrence: US)
  Receive Date: 20140523
  Receipt Date: 20140523
  Transmission Date: 20141212
  Serious: No
  Sender: FDA-Public Use
  Company Number: US-JNJFOC-20140510083

PATIENT
  Age: 43 Year
  Sex: Male

DRUGS (4)
  1. INVEGA SUSTENNA [Suspect]
     Indication: SCHIZOPHRENIA
     Route: 030
     Dates: start: 20140220
  2. WELLBUTRIN [Concomitant]
     Indication: SCHIZOPHRENIA
     Route: 065
  3. NAPROXEN [Concomitant]
     Route: 065
  4. AMITRIPTYLINE [Concomitant]
     Route: 065

REACTIONS (2)
  - Myalgia [Unknown]
  - Drug effect decreased [Unknown]
